FAERS Safety Report 4797463-9 (Version None)
Quarter: 2005Q4

REPORT INFORMATION
  Report Type: 
  Country: None (occurrence: None)
  Receive Date: 20051006
  Receipt Date: 20051006
  Transmission Date: 20060501
  Serious: Yes (Life-Threatening)
  Sender: FDA-Public Use
  Company Number: None

PATIENT
  Age: 52 Year
  Sex: Female
  Weight: 90 kg

DRUGS (13)
  1. AMPICILLIN SODIUM/SULBACTAM SODIUM [Suspect]
     Indication: PROPHYLAXIS
     Dosage: 1.5 GM IV X 1
     Route: 042
     Dates: start: 20041122
  2. CLONIDINE [Concomitant]
  3. INSULIN [Concomitant]
  4. ENALAPRIL [Concomitant]
  5. HEPARIN [Concomitant]
  6. HYDROCORTISONE [Concomitant]
  7. LEVOTHYROXINE [Concomitant]
  8. LINEZOLID [Concomitant]
  9. METOPROLOL [Concomitant]
  10. METRONIDAZOLE [Concomitant]
  11. RANITIDINE [Concomitant]
  12. RISPERIDONE [Concomitant]
  13. VALPROIC ACID [Concomitant]

REACTIONS (3)
  - CONVULSION [None]
  - GENERALISED ERYTHEMA [None]
  - RESPIRATORY FAILURE [None]
